FAERS Safety Report 5736185-4 (Version None)
Quarter: 2008Q2

REPORT INFORMATION
  Report Type: 
  Country: None (occurrence: None)
  Receive Date: 20080513
  Receipt Date: 20080506
  Transmission Date: 20081010
  Serious: Yes (Hospitalization, Other)
  Sender: FDA-Public Use
  Company Number: JP-ABBOTT-08P-087-0450996-00

PATIENT
  Age: 8 Year
  Sex: Male

DRUGS (2)
  1. CEFDINIR [Suspect]
     Indication: PYREXIA
  2. ACETAMINOPHEN [Suspect]
     Indication: PYREXIA

REACTIONS (1)
  - VANISHING BILE DUCT SYNDROME [None]
